FAERS Safety Report 6765955-9 (Version None)
Quarter: 2010Q2

REPORT INFORMATION
  Report Type: 
  Country: None (occurrence: None)
  Receive Date: 20100609
  Receipt Date: 20100601
  Transmission Date: 20101027
  Serious: Yes (Hospitalization)
  Sender: FDA-Public Use
  Company Number: UTC-001131

PATIENT
  Age: 54 Year
  Sex: Female
  Weight: 113 kg

DRUGS (19)
  1. REMODULIN [Suspect]
     Dosage: 64.8 UG/KG (0.045 UG/KG, 1 IN 1 MIN), INTRAVENOUS
     Route: 042
     Dates: start: 20091205
  2. VITAMIN B COMPLEX (B-KOMPLEX) [Concomitant]
  3. VITAMIN D [Concomitant]
  4. ASPIRIN [Concomitant]
  5. GLIPIZIDE [Concomitant]
  6. LETAIRIS (AMBRISENTAN) [Concomitant]
  7. CYMBALTA [Concomitant]
  8. EVISTA (RALOXIFENE0 [Concomitant]
  9. REQUIP XL [Concomitant]
  10. REVATIO [Concomitant]
  11. TRAMADOL HCL [Concomitant]
  12. TRAZODONE HYDROCHLORIDE [Concomitant]
  13. CLONAZEPAM [Concomitant]
  14. LOVASTATIN [Concomitant]
  15. GABAPENTIN [Concomitant]
  16. SPIRONOLACTONE [Concomitant]
  17. KLOR-CON [Concomitant]
  18. WARFARIN [Concomitant]
  19. PERCOCET [Concomitant]

REACTIONS (2)
  - PERICARDIAL EFFUSION [None]
  - PNEUMOTHORAX [None]
